FAERS Safety Report 20791806 (Version 9)
Quarter: 2025Q1

REPORT INFORMATION
  Report Type: Spontaneous
  Country: US (occurrence: US)
  Receive Date: 20220505
  Receipt Date: 20250219
  Transmission Date: 20250409
  Serious: Yes (Other)
  Sender: PFIZER
  Company Number: US-PFIZER INC-202200661860

PATIENT
  Age: 83 Year
  Sex: Female

DRUGS (7)
  1. XELJANZ XR [Suspect]
     Active Substance: TOFACITINIB CITRATE
     Route: 048
  2. XELJANZ XR [Suspect]
     Active Substance: TOFACITINIB CITRATE
     Route: 048
  3. XELJANZ XR [Suspect]
     Active Substance: TOFACITINIB CITRATE
  4. XELJANZ XR [Suspect]
     Active Substance: TOFACITINIB CITRATE
  5. HYDROXYUREA [Suspect]
     Active Substance: HYDROXYUREA
  6. BIOTIN [Concomitant]
     Active Substance: BIOTIN
  7. TYLENOL [Concomitant]
     Active Substance: ACETAMINOPHEN

REACTIONS (8)
  - Leukaemia [Unknown]
  - Lung disorder [Unknown]
  - Illness [Unknown]
  - Peripheral swelling [Unknown]
  - Amnesia [Unknown]
  - Infection [Not Recovered/Not Resolved]
  - Wound [Unknown]
  - Impaired healing [Unknown]
